FAERS Safety Report 5684374-X (Version None)
Quarter: 2008Q1

REPORT INFORMATION
  Report Type: 
  Country: None (occurrence: None)
  Receive Date: 20080328
  Receipt Date: 20080326
  Transmission Date: 20080703
  Serious: Yes (Other)
  Sender: FDA-Public Use
  Company Number: B0513946A

PATIENT
  Age: 62 Year
  Sex: Female

DRUGS (3)
  1. REQUIP [Suspect]
     Indication: DRUG USE FOR UNKNOWN INDICATION
     Route: 048
     Dates: start: 20080225, end: 20080308
  2. PRAMIPEXOLE DIHYDROCHLORIDE [Concomitant]
     Indication: RESTLESS LEGS SYNDROME
     Route: 048
     Dates: start: 20080108, end: 20080225
  3. ORTHO EVRA [Concomitant]
     Route: 062

REACTIONS (3)
  - HYPERHIDROSIS [None]
  - VISION BLURRED [None]
  - VOMITING [None]
